FAERS Safety Report 20603392 (Version 3)
Quarter: 2023Q1

REPORT INFORMATION
  Report Type: Spontaneous
  Country: JP (occurrence: JP)
  Receive Date: 20220316
  Receipt Date: 20230110
  Transmission Date: 20230417
  Serious: Yes (Death, Other)
  Sender: FDA-Public Use
  Company Number: JP-PFIZER INC-202200376947

PATIENT
  Age: 68 Year
  Sex: Female
  Weight: 39 kg

DRUGS (3)
  1. METHYLPREDNISOLONE SODIUM SUCCINATE [Suspect]
     Active Substance: METHYLPREDNISOLONE SODIUM SUCCINATE
     Dosage: 500 MG, DAILY
  2. PREDNISOLONE [Suspect]
     Active Substance: PREDNISOLONE
     Indication: Nephrotic syndrome
     Dosage: 30 MG, DAILY
  3. MIZORIBINE [Suspect]
     Active Substance: MIZORIBINE
     Indication: Nephrotic syndrome
     Dosage: 100 MG, DAILY

REACTIONS (18)
  - Herpes zoster disseminated [Fatal]
  - Hypotension [Unknown]
  - Ascites [Unknown]
  - Oxygen saturation decreased [Unknown]
  - Blood lactate dehydrogenase increased [Unknown]
  - Alanine aminotransferase increased [Recovered/Resolved]
  - Aspartate aminotransferase increased [Recovered/Resolved]
  - Gamma-glutamyltransferase increased [Unknown]
  - Blood alkaline phosphatase increased [Unknown]
  - Haemophagocytic lymphohistiocytosis [Unknown]
  - White blood cell count decreased [Unknown]
  - Pleural effusion [Unknown]
  - Activated partial thromboplastin time prolonged [Unknown]
  - Lung consolidation [Unknown]
  - Haemoglobin decreased [Unknown]
  - Urinary occult blood positive [Unknown]
  - Haematuria [Unknown]
  - White blood cell count increased [Unknown]
